FAERS Safety Report 12675784 (Version 1)
Quarter: 2016Q3

REPORT INFORMATION
  Report Type: Spontaneous
  Country: US (occurrence: None)
  Receive Date: 20160822
  Receipt Date: 20160822
  Transmission Date: 20161109
  Serious: No
  Sender: FDA-Public Use
  Company Number: None

PATIENT
  Age: 33 Year
  Sex: Female
  Weight: 70.31 kg

DRUGS (3)
  1. CREST PRO-HEALTH (STANNOUS FLUORIDE) [Suspect]
     Active Substance: STANNOUS FLUORIDE
     Indication: DENTAL CLEANING
     Dosage: TWICE A DAY APPLIED TO A SURFACE, USUALLY THE SKIN
     Dates: start: 20140101, end: 20140217
  2. PSYLLIUM [Concomitant]
     Active Substance: PLANTAGO SEED
  3. IBUPROFEN. [Concomitant]
     Active Substance: IBUPROFEN

REACTIONS (2)
  - Product quality issue [None]
  - Oral mucosal exfoliation [None]

NARRATIVE: CASE EVENT DATE: 20140210
